FAERS Safety Report 5652336-4 (Version None)
Quarter: 2008Q1

REPORT INFORMATION
  Report Type: 
  Country: None (occurrence: None)
  Receive Date: 20080305
  Receipt Date: 20080305
  Transmission Date: 20080703
  Serious: Yes (Hospitalization)
  Sender: FDA-Public Use
  Company Number: None

PATIENT
  Sex: Male
  Weight: 70.7611 kg

DRUGS (2)
  1. ACETAMINOPHEN W/ CODEINE [Suspect]
     Indication: PROSTATE CANCER
     Dosage: ONE TABLET EVERY 6 HOURS PO
     Route: 048
     Dates: start: 20080123, end: 20080124
  2. ACETAMINOPHEN W/ CODEINE [Suspect]
     Indication: TUMOUR PAIN
     Dosage: ONE TABLET EVERY 6 HOURS PO
     Route: 048
     Dates: start: 20080123, end: 20080124

REACTIONS (2)
  - DEHYDRATION [None]
  - VOMITING [None]
